FAERS Safety Report 4751825-4 (Version None)
Quarter: 2005Q3

REPORT INFORMATION
  Report Type: 
  Country: None (occurrence: None)
  Receive Date: 20050824
  Receipt Date: 20040915
  Transmission Date: 20060218
  Serious: Yes (Life-Threatening, Hospitalization, Other)
  Sender: FDA-Public Use
  Company Number: US-GILEAD-2004-0007493

PATIENT
  Sex: Female
  Weight: 76.272 kg

DRUGS (11)
  1. EMTRICITABINE [Suspect]
     Indication: HIV INFECTION
     Route: 048
     Dates: start: 20031208, end: 20040826
  2. D4T XR [Suspect]
     Indication: HIV INFECTION
     Route: 048
     Dates: start: 20031208, end: 20040826
  3. LOPINAVIR/RITONAVIR [Suspect]
     Indication: HIV INFECTION
     Dates: start: 20031208, end: 20040826
  4. BACTRIM DS [Concomitant]
  5. LISINOPRIL [Concomitant]
  6. ASPIRIN [Concomitant]
  7. GLUCOPHAGE [Concomitant]
  8. TRICOR [Concomitant]
  9. NOVOLIN [Concomitant]
  10. NOVOLOG [Concomitant]
  11. NOVOLOG MIX 70/30 [Concomitant]

REACTIONS (8)
  - ASPARTATE AMINOTRANSFERASE INCREASED [None]
  - BILIRUBIN CONJUGATED INCREASED [None]
  - GAMMA-GLUTAMYLTRANSFERASE INCREASED [None]
  - HEPATIC STEATOSIS [None]
  - HYPOAESTHESIA [None]
  - LACTIC ACIDOSIS [None]
  - OCULAR ICTERUS [None]
  - RASH PUSTULAR [None]
